FAERS Safety Report 17678372 (Version 1)
Quarter: 2020Q2

REPORT INFORMATION
  Report Type: Spontaneous
  Country: US (occurrence: US)
  Receive Date: 20200417
  Receipt Date: 20200417
  Transmission Date: 20200714
  Serious: Yes (Life-Threatening, Hospitalization)
  Sender: FDA-Public Use
  Company Number: US-ROCHE-2581283

PATIENT
  Age: 47 Year
  Sex: Female
  Weight: 53.9 kg

DRUGS (1)
  1. ALECENSA [Suspect]
     Active Substance: ALECTINIB HYDROCHLORIDE
     Indication: NON-SMALL CELL LUNG CANCER
     Route: 048
     Dates: start: 20200213

REACTIONS (4)
  - Respiratory failure [Unknown]
  - Product dose omission [Unknown]
  - Gastrointestinal tube insertion [Unknown]
  - Endotracheal intubation [Not Recovered/Not Resolved]

NARRATIVE: CASE EVENT DATE: 20200405
